FAERS Safety Report 7283082-1 (Version None)
Quarter: 2011Q1

REPORT INFORMATION
  Report Type: 
  Country: None (occurrence: None)
  Receive Date: 20110209
  Receipt Date: 20110130
  Transmission Date: 20110831
  Serious: Yes (Other)
  Sender: FDA-Public Use
  Company Number: BR-ROCHE-737010

PATIENT
  Sex: Female
  Weight: 70 kg

DRUGS (4)
  1. OMEGA III FATTY ACID [Concomitant]
  2. BONIVA [Suspect]
     Indication: ARTHRITIS
     Route: 048
     Dates: start: 20090101
  3. ZETIA [Suspect]
     Route: 065
  4. XENICAL [Concomitant]

REACTIONS (3)
  - BLOOD PRESSURE FLUCTUATION [None]
  - BLOOD CREATINE PHOSPHOKINASE INCREASED [None]
  - THERAPEUTIC RESPONSE DECREASED [None]
